FAERS Safety Report 17573050 (Version 3)
Quarter: 2020Q2

REPORT INFORMATION
  Report Type: Spontaneous
  Country: IT (occurrence: IT)
  Receive Date: 20200323
  Receipt Date: 20200515
  Transmission Date: 20200713
  Serious: Yes (Death, Other)
  Sender: FDA-Public Use
  Company Number: IT-MYLANLABS-2020M1029308

PATIENT
  Age: 40 Year
  Sex: Male

DRUGS (31)
  1. MIDAZOLAM. [Suspect]
     Active Substance: MIDAZOLAM
     Indication: INSOMNIA
     Dosage: 15 MILLIGRAM
     Route: 042
  2. HALOPERIDOL. [Suspect]
     Active Substance: HALOPERIDOL
     Indication: PSYCHOMOTOR HYPERACTIVITY
     Dosage: DAY 5
     Route: 048
  3. CLOTIAPINE [Suspect]
     Active Substance: CLOTHIAPINE
     Dosage: 120 MILLIGRAM, QD
     Route: 030
  4. HALOPERIDOL. [Suspect]
     Active Substance: HALOPERIDOL
     Indication: PSYCHOMOTOR HYPERACTIVITY
     Dosage: DAY 1
     Route: 042
  5. HALOPERIDOL. [Suspect]
     Active Substance: HALOPERIDOL
     Indication: AGITATION
  6. HALOPERIDOL. [Suspect]
     Active Substance: HALOPERIDOL
     Dosage: DAY 4
     Route: 048
  7. DELORAZEPAM [Suspect]
     Active Substance: DELORAZEPAM
     Indication: AGITATION
     Dosage: DAY 2 AT NIGHT
     Route: 030
  8. CLOZAPINE. [Suspect]
     Active Substance: CLOZAPINE
     Indication: AGITATION
     Dosage: DAY 3 AND 5 :  100 MG 3 TIMES DAILY
     Route: 048
  9. VALPROATE [Suspect]
     Active Substance: VALPROIC ACID
     Indication: PSYCHOMOTOR HYPERACTIVITY
     Dosage: DAY 3 TO DAY 5 : 1500 MG DAILY
     Route: 048
  10. VALPROATE [Suspect]
     Active Substance: VALPROIC ACID
     Indication: INSOMNIA
     Dosage: DAY 1
     Route: 048
  11. CLOTIAPINE [Suspect]
     Active Substance: CLOTHIAPINE
     Indication: PSYCHOMOTOR HYPERACTIVITY
     Dosage: AT NIGHT, DAY 1
     Route: 030
  12. CHLORPROMAZINE. [Suspect]
     Active Substance: CHLORPROMAZINE
     Indication: AGITATION
     Dosage: DAY 1
     Route: 042
  13. DELORAZEPAM [Suspect]
     Active Substance: DELORAZEPAM
     Indication: PSYCHOMOTOR HYPERACTIVITY
     Dosage: DAY 3 TO DAY 5
     Route: 048
  14. CLOZAPINE. [Suspect]
     Active Substance: CLOZAPINE
     Indication: PSYCHOMOTOR HYPERACTIVITY
     Dosage: BEFORE HOSPITALIZATION
     Route: 048
  15. DELORAZEPAM [Suspect]
     Active Substance: DELORAZEPAM
     Indication: PSYCHOMOTOR HYPERACTIVITY
     Dosage: DAY 1
     Route: 042
  16. DELORAZEPAM [Suspect]
     Active Substance: DELORAZEPAM
     Dosage: 5 MILLIGRAM, QD
     Route: 030
  17. CLOZAPINE. [Suspect]
     Active Substance: CLOZAPINE
     Dosage: DAY 2
     Route: 048
  18. CLOZAPINE. [Suspect]
     Active Substance: CLOZAPINE
     Dosage: 400 MILLIGRAM, QD
     Route: 048
  19. MIDAZOLAM. [Suspect]
     Active Substance: MIDAZOLAM
     Indication: PSYCHOMOTOR HYPERACTIVITY
     Dosage: DAY 1 AT 1.00 PM, 5 MG AT NIGHT
     Route: 042
  20. CLOTIAPINE [Suspect]
     Active Substance: CLOTHIAPINE
     Indication: INSOMNIA
     Dosage: DAY 2
     Route: 030
  21. CLOZAPINE. [Suspect]
     Active Substance: CLOZAPINE
     Indication: MANIA
     Dosage: DAY 4
     Route: 048
  22. CLOZAPINE. [Suspect]
     Active Substance: CLOZAPINE
     Dosage: 300 MILLIGRAM, QD
     Route: 048
  23. PROMAZINE [Suspect]
     Active Substance: PROMAZINE
     Dosage: DAY 3 AND 4
     Route: 048
  24. CLOTIAPINE [Suspect]
     Active Substance: CLOTHIAPINE
     Dosage: DAY 3
     Route: 030
  25. CHLORPROMAZINE. [Suspect]
     Active Substance: CHLORPROMAZINE
     Indication: PRODUCT USED FOR UNKNOWN INDICATION
     Dosage: 60 MILLIGRAM, QD
     Route: 048
  26. CLOZAPINE. [Suspect]
     Active Substance: CLOZAPINE
     Dosage: 100 MILLIGRAM, QD
     Route: 048
  27. MIDAZOLAM. [Suspect]
     Active Substance: MIDAZOLAM
     Indication: AGITATION
     Dosage: 5 MILLIGRAM
     Route: 042
  28. VALPROATE [Suspect]
     Active Substance: VALPROIC ACID
     Indication: AGITATION
     Dosage: DAY 2
     Route: 048
  29. PROMAZINE [Suspect]
     Active Substance: PROMAZINE
     Indication: PSYCHOMOTOR HYPERACTIVITY
     Dosage: DAY 5
     Route: 048
  30. CHLORPHENIRAMINE                   /00072501/ [Suspect]
     Active Substance: CHLORPHENIRAMINE
     Indication: PSYCHOMOTOR HYPERACTIVITY
     Dosage: DAY 1
     Route: 042
  31. CHLORPROMAZINE. [Suspect]
     Active Substance: CHLORPROMAZINE
     Indication: PSYCHOMOTOR HYPERACTIVITY
     Dosage: DAY 2 AT NIGHT
     Route: 030

REACTIONS (3)
  - Sudden death [Fatal]
  - Syncope [Unknown]
  - Drug ineffective [Unknown]
